FAERS Safety Report 14319539 (Version 1)
Quarter: 2017Q4

REPORT INFORMATION
  Report Type: Spontaneous
  Country: CA (occurrence: CA)
  Receive Date: 20171222
  Receipt Date: 20171222
  Transmission Date: 20180321
  Serious: Yes (Other)
  Sender: FDA-Public Use
  Company Number: CA-PFIZER INC-2015270908

PATIENT
  Age: 54 Year
  Sex: Male

DRUGS (2)
  1. METHOTREXATE SODIUM. [Suspect]
     Active Substance: METHOTREXATE SODIUM
     Indication: RHEUMATOID ARTHRITIS
     Dosage: UNK
     Route: 065
  2. XELJANZ [Suspect]
     Active Substance: TOFACITINIB CITRATE
     Indication: RHEUMATOID ARTHRITIS
     Dosage: 5 MG, 2X/DAY
     Route: 048
     Dates: start: 20141106

REACTIONS (8)
  - Fall [Unknown]
  - Drug effect incomplete [Unknown]
  - Finger deformity [Unknown]
  - Joint swelling [Unknown]
  - Peripheral swelling [Unknown]
  - Hand deformity [Unknown]
  - Pancreatitis [Unknown]
  - Rib fracture [Unknown]

NARRATIVE: CASE EVENT DATE: 2017
